FAERS Safety Report 23767957 (Version 1)
Quarter: 2024Q2

REPORT INFORMATION
  Report Type: Spontaneous
  Country: CN (occurrence: None)
  Receive Date: 20240422
  Receipt Date: 20240422
  Transmission Date: 20240716
  Serious: Yes (Hospitalization)
  Sender: FDA-Public Use
  Company Number: CN-ROCHE-3547660

PATIENT
  Age: 27 Year
  Sex: Male
  Weight: 65 kg

DRUGS (1)
  1. MABTHERA [Suspect]
     Active Substance: RITUXIMAB
     Indication: Glomerulonephritis chronic
     Route: 041
     Dates: start: 20240323, end: 20240323

REACTIONS (2)
  - Acute kidney injury [Unknown]
  - Off label use [Unknown]

NARRATIVE: CASE EVENT DATE: 20240403
